FAERS Safety Report 8826157 (Version 1)
Quarter: 2012Q4

REPORT INFORMATION
  Report Type: 
  Country: TR (occurrence: TR)
  Receive Date: 20121005
  Receipt Date: 20121005
  Transmission Date: 20130627
  Serious: Yes (Life-Threatening)
  Sender: FDA-Public Use
  Company Number: PHHY2012TR086052

PATIENT
  Age: 41 Year
  Sex: Female
  Weight: 99 kg

DRUGS (6)
  1. GLIVEC [Suspect]
     Indication: ACUTE LYMPHOCYTIC LEUKAEMIA
     Dosage: 600 mg, single dose
     Route: 048
     Dates: start: 20120906, end: 20120906
  2. CIPRO [Concomitant]
     Dosage: 500 mg 1x1 daily
  3. FUROSEMIDE [Concomitant]
     Dosage: 1x1
     Route: 041
  4. DEMEPRAZOLE [Concomitant]
     Dosage: 1x1
  5. URIKOLIZ [Concomitant]
     Dosage: 1x1
  6. NIPIDOL [Concomitant]
     Dosage: 1x1

REACTIONS (5)
  - Respiratory rate decreased [Recovered/Resolved]
  - Rhonchi [Recovered/Resolved]
  - Dyspnoea [Recovered/Resolved]
  - Hypersensitivity [Recovered/Resolved]
  - Flushing [Recovered/Resolved]
